FAERS Safety Report 23405805 (Version 3)
Quarter: 2025Q2

REPORT INFORMATION
  Report Type: Spontaneous
  Country: US (occurrence: US)
  Receive Date: 20240116
  Receipt Date: 20250511
  Transmission Date: 20250717
  Serious: No
  Sender: SANOFI AVENTIS
  Company Number: US-SA-SAC20240110001443

PATIENT
  Age: 8 Year
  Sex: Male

DRUGS (2)
  1. DUPIXENT [Suspect]
     Active Substance: DUPILUMAB
     Indication: Eczema
     Route: 058
     Dates: start: 20231219, end: 20231219
  2. DUPIXENT [Suspect]
     Active Substance: DUPILUMAB
     Indication: Pharyngitis streptococcal
     Dosage: 200 MG, QOW
     Route: 058
     Dates: start: 20240102

REACTIONS (2)
  - Eczema [Unknown]
  - Product use in unapproved indication [Unknown]

NARRATIVE: CASE EVENT DATE: 20231219
